FAERS Safety Report 18996500 (Version 10)
Quarter: 2022Q4

REPORT INFORMATION
  Report Type: Report from Study
  Country: US (occurrence: US)
  Receive Date: 20210311
  Receipt Date: 20221114
  Transmission Date: 20230112
  Serious: No
  Sender: FDA-Public Use
  Company Number: NVSC2021US055249

PATIENT
  Sex: Female

DRUGS (1)
  1. COSENTYX [Suspect]
     Active Substance: SECUKINUMAB
     Indication: Product used for unknown indication
     Dosage: UNK
     Route: 065

REACTIONS (9)
  - Pain [Unknown]
  - Skin exfoliation [Unknown]
  - Condition aggravated [Unknown]
  - Gait disturbance [Unknown]
  - Arthritis [Unknown]
  - Product distribution issue [Unknown]
  - Product dose omission issue [Unknown]
  - Product storage error [Unknown]
  - Wrong technique in product usage process [Unknown]
